FAERS Safety Report 17602476 (Version 1)
Quarter: 2020Q1

REPORT INFORMATION
  Report Type: Spontaneous
  Country: US (occurrence: US)
  Receive Date: 20200330
  Receipt Date: 20200330
  Transmission Date: 20200409
  Serious: No
  Sender: FDA-Public Use
  Company Number: US-SEPTODONT-201905460

PATIENT
  Age: 65 Year
  Sex: Female

DRUGS (1)
  1. LIDOCAINE CARTRIDGE 2% W/EPI [Suspect]
     Active Substance: EPINEPHRINE\LIDOCAINE
     Indication: DENTAL LOCAL ANAESTHESIA
     Dosage: IT TOOK THREE CARPULES TO GET THE PATIENTS NUMB. NORMALLY HE USES TWO.
     Route: 004
     Dates: start: 201908, end: 201908

REACTIONS (4)
  - Discomfort [Recovered/Resolved]
  - Lip swelling [Recovered/Resolved]
  - Swelling face [Recovered/Resolved]
  - Drug ineffective [Recovered/Resolved]

NARRATIVE: CASE EVENT DATE: 201908
